FAERS Safety Report 6846842-4 (Version None)
Quarter: 2010Q3

REPORT INFORMATION
  Report Type: 
  Country: None (occurrence: None)
  Receive Date: 20100715
  Receipt Date: 20070920
  Transmission Date: 20110219
  Serious: No
  Sender: FDA-Public Use
  Company Number: US-PFIZER INC-2007080543

PATIENT
  Sex: Female
  Weight: 45 kg

DRUGS (4)
  1. CHANTIX [Suspect]
     Indication: SMOKING CESSATION THERAPY
     Route: 048
     Dates: start: 20070914
  2. PENTOXIFYLLINE [Concomitant]
  3. HYDROCHLOROTHIAZIDE [Concomitant]
  4. ENALAPRIL MALEATE [Concomitant]

REACTIONS (1)
  - HEADACHE [None]
